FAERS Safety Report 9004720 (Version 4)
Quarter: 2013Q1

REPORT INFORMATION
  Report Type: Spontaneous
  Country: JP (occurrence: None)
  Receive Date: 20121227
  Receipt Date: 20130207
  Transmission Date: 20140127
  Serious: Yes (Other)
  Sender: FDA-Public Use
  Company Number: SPI201200355

PATIENT
  Age: 74 Year
  Sex: Female

DRUGS (5)
  1. AMITIZA [Suspect]
     Indication: CONSTIPATION
     Route: 048
     Dates: start: 20121202, end: 20121202
  2. TAKEPRON (LANSOPRAZOLE) [Concomitant]
  3. MYSLEE (ZOLPIDEM TARTRATE) [Concomitant]
  4. AMLODIPINE (AMLODIPINE BESILATE) [Concomitant]
  5. EDIROL [Concomitant]

REACTIONS (8)
  - Tremor [None]
  - Hyperventilation [None]
  - Chest discomfort [None]
  - Electrocardiogram QT prolonged [None]
  - Dyspnoea [None]
  - Malaise [None]
  - Nausea [None]
  - Drug ineffective [None]
